FAERS Safety Report 4606054-1 (Version None)
Quarter: 2005Q2

REPORT INFORMATION
  Report Type: 
  Country: None (occurrence: None)
  Receive Date: 20050303
  Receipt Date: 20041108
  Transmission Date: 20051028
  Serious: No
  Sender: FDA-Public Use
  Company Number: 200420968BWH

PATIENT
  Age: 61 Year
  Sex: Male

DRUGS (2)
  1. LEVITRA [Suspect]
     Indication: ERECTILE DYSFUNCTION
     Dosage: QD
     Dates: start: 20041105, end: 20041106
  2. ACCUPRIL [Concomitant]

REACTIONS (1)
  - BLOOD PRESSURE DECREASED [None]
